FAERS Safety Report 5206451-X (Version None)
Quarter: 2006Q4

REPORT INFORMATION
  Report Type: 
  Country: None (occurrence: None)
  Receive Date: 20061026
  Receipt Date: 20060916
  Transmission Date: 20070319
  Serious: Yes (Other)
  Sender: FDA-Public Use
  Company Number: 2006112822

PATIENT
  Age: 62 Year
  Sex: Male
  Weight: 126.5536 kg

DRUGS (10)
  1. LYRICA [Suspect]
     Indication: DIABETIC NEUROPATHY
     Dosage: 150 MG (50 MG, 3 IN1 D)
     Dates: start: 20060914
  2. ALL OTHER THERAPEUTIC PRODUCTS (ALL OTHER THERAPEUTIC PRODUCTS) [Concomitant]
  3. NORVASC [Concomitant]
  4. PLAVIX [Concomitant]
  5. AVAPRO [Concomitant]
  6. LASIX [Concomitant]
  7. ACTOS [Concomitant]
  8. ALPHA LIPOIC AICD (THIOCTIC ACID) [Concomitant]
  9. COENZYME Q10 [Concomitant]
  10. LOPRESSOR [Concomitant]

REACTIONS (4)
  - DYSKINESIA [None]
  - HALLUCINATION [None]
  - MUSCLE DISORDER [None]
  - TREMOR [None]
